FAERS Safety Report 7621054-5 (Version None)
Quarter: 2011Q3

REPORT INFORMATION
  Report Type: 
  Country: None (occurrence: None)
  Receive Date: 20110719
  Receipt Date: 20100614
  Transmission Date: 20111222
  Serious: No
  Sender: FDA-Public Use
  Company Number: US-KINGPHARMUSA00001-K201000757

PATIENT
  Age: 81 Year
  Sex: Female
  Weight: 70.295 kg

DRUGS (7)
  1. LIBRIUM [Concomitant]
     Indication: GASTROINTESTINAL PAIN
     Dosage: 2 MG, TID
     Route: 048
  2. LEVOXYL [Suspect]
     Indication: HYPOTHYROIDISM
     Dosage: 75 MCG, QHS
     Route: 048
  3. LEVOXYL [Suspect]
     Dosage: 75 MCG, QAM
  4. VERAPAMIL [Concomitant]
     Indication: ARTERIAL SPASM
     Dosage: 240 MG, QHS
     Route: 048
  5. TYLENOL-500 [Concomitant]
     Dosage: 2 DF, QHS
     Route: 048
  6. LISINOPRIL [Concomitant]
     Indication: HYPERTENSION
     Dosage: 2.5 MG, BID
     Route: 048
     Dates: start: 19910101
  7. PREMARIN [Concomitant]
     Dosage: 0.625 UNK, UNK
     Route: 048

REACTIONS (10)
  - BLOOD PRESSURE INCREASED [None]
  - DROOLING [None]
  - WEIGHT DECREASED [None]
  - PRESYNCOPE [None]
  - DYSPNOEA [None]
  - EXTRASYSTOLES [None]
  - PULSE ABNORMAL [None]
  - TEMPERATURE INTOLERANCE [None]
  - PYREXIA [None]
  - ALOPECIA [None]
